FAERS Safety Report 21464141 (Version 2)
Quarter: 2022Q4

REPORT INFORMATION
  Report Type: Spontaneous
  Country: US (occurrence: US)
  Receive Date: 20221017
  Receipt Date: 20221028
  Transmission Date: 20230113
  Serious: Yes (Other)
  Sender: FDA-Public Use
  Company Number: US-AUROBINDO-AUR-APL-2022-042562

PATIENT
  Age: 88 Year
  Sex: Male
  Weight: 84 kg

DRUGS (2)
  1. DEXTROMETHORPHAN\GUAIFENESIN [Suspect]
     Active Substance: DEXTROMETHORPHAN\GUAIFENESIN
     Indication: Cough
     Dosage: 1 DOSAGE FORM, TWO TIMES A DAY
     Route: 065
     Dates: start: 20220930
  2. BENZONATATE [Concomitant]
     Active Substance: BENZONATATE
     Indication: Cough
     Dosage: UNK
     Route: 065

REACTIONS (4)
  - Choking [Unknown]
  - Product use complaint [Unknown]
  - Wrong technique in product usage process [Unknown]
  - Product size issue [Unknown]

NARRATIVE: CASE EVENT DATE: 20221003
